FAERS Safety Report 13082484 (Version 3)
Quarter: 2017Q1

REPORT INFORMATION
  Report Type: Spontaneous
  Country: US (occurrence: US)
  Receive Date: 20170103
  Receipt Date: 20170329
  Transmission Date: 20170428
  Serious: No
  Sender: FDA-Public Use
  Company Number: US-PFIZER INC-2016551780

PATIENT
  Age: 86 Year
  Sex: Female
  Weight: 61 kg

DRUGS (2)
  1. PHOSPHOLINE IODIDE [Suspect]
     Active Substance: ECHOTHIOPHATE IODIDE
     Indication: INTRAOCULAR PRESSURE INCREASED
     Dosage: ONE DROP IN BOTH EYES IN THE MORNING AND AT NIGHT
     Route: 061
  2. PHOSPHOLINE IODIDE [Suspect]
     Active Substance: ECHOTHIOPHATE IODIDE
     Indication: GLAUCOMA

REACTIONS (1)
  - Visual acuity reduced [Unknown]
